FAERS Safety Report 8465656-5 (Version None)
Quarter: 2012Q2

REPORT INFORMATION
  Report Type: 
  Country: None (occurrence: None)
  Receive Date: 20120626
  Receipt Date: 20120618
  Transmission Date: 20120825
  Serious: Yes (Hospitalization)
  Sender: FDA-Public Use
  Company Number: FR-BAYER-200931892GPV

PATIENT
  Age: 79 Year
  Sex: Male

DRUGS (13)
  1. ANDROCUR [Suspect]
     Indication: NEOPLASM PROSTATE
     Route: 048
     Dates: end: 20090408
  2. FERROUS FUMARATE [Suspect]
     Indication: IRON DEFICIENCY
     Route: 048
     Dates: end: 20090408
  3. ACETAMINOPHEN [Suspect]
     Indication: PAIN
     Route: 042
     Dates: start: 20090408, end: 20090413
  4. AMITRIPTYLINE HYDROCHLORIDE [Suspect]
     Indication: DEPRESSION
     Route: 048
     Dates: end: 20090408
  5. CALCIUM CARBONATE [Suspect]
     Indication: CALCIUM DEFICIENCY
     Route: 048
     Dates: end: 20090408
  6. CALCIPARINE [Suspect]
     Indication: PROPHYLAXIS
     Route: 042
     Dates: start: 20090408, end: 20090410
  7. ROVAMYCIN [Suspect]
     Indication: URINARY TRACT INFECTION
     Route: 048
     Dates: start: 20090301, end: 20090408
  8. XANAX [Suspect]
     Indication: ANXIETY
     Route: 048
     Dates: end: 20090408
  9. CIPROFLOXACIN HYDROCHLORIDE [Suspect]
     Indication: URINARY TRACT INFECTION
     Dosage: 400MG/200 ML
     Route: 042
     Dates: start: 20090408, end: 20090413
  10. PRIMPERAN TAB [Suspect]
     Indication: NAUSEA
     Dosage: 2 AMPULES A DAY
     Route: 042
     Dates: start: 20090408, end: 20090413
  11. ROCEPHIN [Suspect]
     Indication: URINARY TRACT INFECTION
     Dosage: 1 G/10 ML
     Route: 042
     Dates: start: 20090408, end: 20090410
  12. NEXIUM [Suspect]
     Indication: PROPHYLAXIS
     Route: 048
     Dates: end: 20090426
  13. LASIX [Suspect]
     Indication: PRODUCT USED FOR UNKNOWN INDICATION
     Route: 048
     Dates: end: 20090408

REACTIONS (8)
  - METABOLIC ACIDOSIS [None]
  - LEUKOCYTOSIS [None]
  - RENAL FAILURE ACUTE [None]
  - THROMBOCYTOPENIA [None]
  - OEDEMA PERIPHERAL [None]
  - VENOUS THROMBOSIS [None]
  - PYREXIA [None]
  - UROSEPSIS [None]
